FAERS Safety Report 21591054 (Version 2)
Quarter: 2022Q4

REPORT INFORMATION
  Report Type: Spontaneous
  Country: US (occurrence: US)
  Receive Date: 20221114
  Receipt Date: 20221202
  Transmission Date: 20230113
  Serious: No
  Sender: FDA-Public Use
  Company Number: US-BIOVITRUM-2022US12568

PATIENT
  Age: 19 Year
  Sex: Female

DRUGS (2)
  1. KINERET [Suspect]
     Active Substance: ANAKINRA
     Indication: Blood electrolytes abnormal
     Dosage: FOR 5-7 DAYS AS NEEDED
     Dates: start: 20221016
  2. KINERET [Suspect]
     Active Substance: ANAKINRA
     Dates: start: 20221004

REACTIONS (4)
  - Malaise [Unknown]
  - Injection site erythema [Unknown]
  - Injection site mass [Unknown]
  - Off label use [Recovered/Resolved]

NARRATIVE: CASE EVENT DATE: 20221004
